FAERS Safety Report 16619480 (Version 1)
Quarter: 2019Q3

REPORT INFORMATION
  Report Type: Report from Study
  Country: US (occurrence: US)
  Receive Date: 20190723
  Receipt Date: 20190723
  Transmission Date: 20191004
  Serious: Yes (Other)
  Sender: FDA-Public Use
  Company Number: US-PFIZER INC-2019167627

PATIENT
  Age: 55 Year
  Sex: Female

DRUGS (4)
  1. IBRANCE [Suspect]
     Active Substance: PALBOCICLIB
     Dosage: 100 MG, CYCLIC (DAILY 21 DAYS ON AND 7 DAYS OFF)
     Route: 048
     Dates: start: 20190625, end: 20190627
  2. IBRANCE [Suspect]
     Active Substance: PALBOCICLIB
     Indication: BREAST CANCER FEMALE
     Dosage: 125 MG, CYCLIC (14 DAYS ON AND 14 DAYS OFF)
     Route: 048
     Dates: start: 20190404
  3. IBRANCE [Suspect]
     Active Substance: PALBOCICLIB
     Dosage: 125 MG, CYCLIC (DAILY FOR 14 DAYS ON AND 14 DAYS OFF)
     Route: 048
  4. IBRANCE [Suspect]
     Active Substance: PALBOCICLIB
     Dosage: 100 MG, CYCLIC,(DAILY 21 DAYS ON AND 7 DAYS OFF)
     Route: 048
     Dates: start: 20190709

REACTIONS (22)
  - Neutropenia [Recovering/Resolving]
  - Portal hypertension [Unknown]
  - Constipation [Recovering/Resolving]
  - Pulmonary fibrosis [Unknown]
  - Intentional product use issue [Unknown]
  - Skin fissures [Unknown]
  - Diarrhoea [Not Recovered/Not Resolved]
  - Myalgia [Not Recovered/Not Resolved]
  - Abdominal distension [Not Recovered/Not Resolved]
  - Liver disorder [Unknown]
  - Pain [Recovering/Resolving]
  - Pulmonary oedema [Not Recovered/Not Resolved]
  - Arthralgia [Not Recovered/Not Resolved]
  - Flatulence [Recovering/Resolving]
  - Hepatic enzyme increased [Unknown]
  - Leukopenia [Recovering/Resolving]
  - Bone marrow failure [Recovered/Resolved]
  - Fatigue [Recovering/Resolving]
  - Pruritus [Unknown]
  - Nausea [Recovering/Resolving]
  - Abdominal pain [Recovering/Resolving]
  - Lung disorder [Unknown]

NARRATIVE: CASE EVENT DATE: 2019
